FAERS Safety Report 21070472 (Version 2)
Quarter: 2022Q4

REPORT INFORMATION
  Report Type: Spontaneous
  Country: US (occurrence: US)
  Receive Date: 20220712
  Receipt Date: 20221128
  Transmission Date: 20230113
  Serious: Yes (Hospitalization, Other)
  Sender: FDA-Public Use
  Company Number: US-GLENMARK PHARMACEUTICALS-2022GMK073440

PATIENT
  Age: 80 Year
  Sex: Male

DRUGS (12)
  1. CLINDAMYCIN PHOSPHATE [Suspect]
     Active Substance: CLINDAMYCIN PHOSPHATE
     Indication: Babesiosis
     Dosage: 600 MILLIGRAM, TID (ON DAY 74)
     Route: 065
  2. CLINDAMYCIN PHOSPHATE [Suspect]
     Active Substance: CLINDAMYCIN PHOSPHATE
     Dosage: RESTARTED (ON DAY 148)
     Route: 065
  3. CLINDAMYCIN PHOSPHATE [Suspect]
     Active Substance: CLINDAMYCIN PHOSPHATE
     Dosage: 300 MILLIGRAM, TID (ON DAY 227, LOW DOSE)
     Route: 065
  4. QUININE [Suspect]
     Active Substance: QUININE
     Indication: Babesiosis
     Dosage: 648 MILLIGRAM, TID (ON DAY 74)
     Route: 065
  5. QUININE [Suspect]
     Active Substance: QUININE
     Dosage: RESTARTED ON DAY 208)
     Route: 065
  6. RITUXIMAB [Suspect]
     Active Substance: RITUXIMAB
     Indication: Monoclonal B-cell lymphocytosis
     Dosage: UNK
     Route: 065
  7. BENDAMUSTINE [Suspect]
     Active Substance: BENDAMUSTINE
     Indication: Monoclonal B-cell lymphocytosis
     Dosage: UNK
     Route: 065
  8. ATOVAQUONE [Suspect]
     Active Substance: ATOVAQUONE
     Indication: Babesiosis
     Dosage: ADDED ON DAY 110
     Route: 065
  9. ATOVAQUONE [Suspect]
     Active Substance: ATOVAQUONE
     Dosage: 1250 MILLIGRAM, QD (DAY 260)
     Route: 065
  10. AZITHROMYCIN [Suspect]
     Active Substance: AZITHROMYCIN
     Indication: Babesiosis
     Dosage: UNK, ADDED ON DAY 110
     Route: 065
  11. AZITHROMYCIN [Suspect]
     Active Substance: AZITHROMYCIN
     Dosage: 1000 MILLIGRAM, QD (HIGH DOSE)
     Route: 065
  12. ATOVAQUONE\PROGUANIL [Suspect]
     Active Substance: ATOVAQUONE\PROGUANIL
     Indication: Babesiosis
     Dosage: 1000/400 MG, QD
     Route: 065

REACTIONS (3)
  - Babesiosis [Recovered/Resolved]
  - Disease recurrence [Recovered/Resolved]
  - Deafness [Unknown]
